FAERS Safety Report 4491791-2 (Version None)
Quarter: 2004Q4

REPORT INFORMATION
  Report Type: 
  Country: None (occurrence: None)
  Receive Date: 20041101
  Receipt Date: 20041022
  Transmission Date: 20050328
  Serious: Yes (Other)
  Sender: FDA-Public Use
  Company Number: 2004240482NL

PATIENT
  Age: 28 Year
  Sex: Female

DRUGS (2)
  1. PROSTIN E2 [Suspect]
     Indication: LABOUR INDUCTION
     Dosage: VAGINAL
     Route: 067
  2. LABETALOL HCL [Concomitant]

REACTIONS (4)
  - CAESAREAN SECTION [None]
  - LABOUR COMPLICATION [None]
  - PLACENTAL INSUFFICIENCY [None]
  - UTERINE HYPERTONUS [None]
